FAERS Safety Report 9585233 (Version 1)
Quarter: 2013Q4

REPORT INFORMATION
  Report Type: Spontaneous
  Country: US (occurrence: US)
  Receive Date: 20131002
  Receipt Date: 20131002
  Transmission Date: 20140711
  Serious: Yes (Other)
  Sender: FDA-Public Use
  Company Number: US-AMGEN-USASP2013063028

PATIENT
  Age: 52 Year
  Sex: Male
  Weight: 99.77 kg

DRUGS (7)
  1. ENBREL [Suspect]
     Indication: PRODUCT USED FOR UNKNOWN INDICATION
     Dosage: UNK
     Route: 065
  2. HUMIRA [Concomitant]
     Dosage: UNK
  3. METHOTREXATE [Concomitant]
     Dosage: UNK
  4. 6-MP [Concomitant]
     Dosage: UNK
  5. CYCLOSPORINE [Concomitant]
     Dosage: UNK
  6. MYCOPHENOLATE MOFETIL [Concomitant]
     Dosage: UNK
  7. CIMZIA [Concomitant]
     Dosage: UNK

REACTIONS (2)
  - Upper respiratory tract infection bacterial [Unknown]
  - Blood testosterone decreased [Unknown]
